FAERS Safety Report 24276057 (Version 1)
Quarter: 2024Q3

REPORT INFORMATION
  Report Type: Spontaneous
  Country: US (occurrence: US)
  Receive Date: 20240903
  Receipt Date: 20240903
  Transmission Date: 20241017
  Serious: Yes (Other)
  Sender: AMNEAL
  Company Number: US-AMNEAL PHARMACEUTICALS-2024-AMRX-03131

PATIENT
  Age: 34 Year
  Sex: Male

DRUGS (7)
  1. TRIAMCINOLONE ACETONIDE [Suspect]
     Active Substance: TRIAMCINOLONE ACETONIDE
     Indication: Alopecia areata
     Dosage: INJECTION 2.5 MG/ML, 3 ML TO THE SCALP
     Route: 026
  2. TRIAMCINOLONE ACETONIDE [Suspect]
     Active Substance: TRIAMCINOLONE ACETONIDE
     Dosage: 2 CC, 2.5 MG/CC WERE ADMINISTERED EVERY 3 MONTHS
     Route: 026
  3. TRIAMCINOLONE ACETONIDE [Suspect]
     Active Substance: TRIAMCINOLONE ACETONIDE
     Dosage: 9 CC INJECTIONS TO THE SCALP AND EYEBROWS
     Route: 026
     Dates: start: 2022
  4. MINOXIDIL [Concomitant]
     Active Substance: MINOXIDIL
     Indication: Alopecia areata
     Dosage: MINOXIDIL 5%
     Route: 061
  5. CLOBETASOL [Concomitant]
     Active Substance: CLOBETASOL
     Indication: Alopecia areata
     Dosage: 0.05%
     Route: 061
  6. FINASTERIDE [Concomitant]
     Active Substance: FINASTERIDE
     Indication: Alopecia areata
     Dosage: UNK
     Route: 065
  7. RUXOLITINIB [Concomitant]
     Active Substance: RUXOLITINIB
     Indication: Alopecia areata
     Dosage: UNK
     Route: 061

REACTIONS (1)
  - Central serous chorioretinopathy [Recovering/Resolving]
